FAERS Safety Report 15789619 (Version 1)
Quarter: 2018Q4

REPORT INFORMATION
  Report Type: Spontaneous
  Country: US (occurrence: US)
  Receive Date: 20181231
  Receipt Date: 20181231
  Transmission Date: 20190205
  Serious: Yes (Other)
  Sender: FDA-Public Use
  Company Number: US-PFIZER INC-2018532414

PATIENT
  Age: 74 Year
  Sex: Female

DRUGS (1)
  1. BOSULIF [Suspect]
     Active Substance: BOSUTINIB MONOHYDRATE
     Dosage: 100 MG, UNK

REACTIONS (5)
  - Chronic myeloid leukaemia [Unknown]
  - Diarrhoea [Unknown]
  - White blood cell count increased [Unknown]
  - Cardiac failure [Unknown]
  - Dyspnoea [Unknown]
